FAERS Safety Report 8035526-5 (Version None)
Quarter: 2012Q1

REPORT INFORMATION
  Report Type: 
  Country: None (occurrence: None)
  Receive Date: 20120111
  Receipt Date: 20120105
  Transmission Date: 20120608
  Serious: Yes (Hospitalization)
  Sender: FDA-Public Use
  Company Number: US-CELGENEUS-163-21880-11093174

PATIENT
  Sex: Male

DRUGS (6)
  1. LANTUS [Concomitant]
     Dosage: 30 UNITS
     Route: 065
  2. DAPSONE [Concomitant]
     Dosage: 100 MILLIGRAM
     Route: 065
  3. REVLIMID [Suspect]
     Dosage: 10 MILLIGRAM
     Route: 048
     Dates: start: 20110822, end: 20110920
  4. FLUCONAZOLE [Concomitant]
     Route: 048
  5. FLOMAX [Concomitant]
     Dosage: .4 MILLIGRAM
     Route: 065
  6. ACYCLOVIR [Concomitant]
     Dosage: 400 MILLIGRAM
     Route: 065

REACTIONS (1)
  - GRAFT VERSUS HOST DISEASE [None]
